FAERS Safety Report 5653399-2 (Version None)
Quarter: 2008Q1

REPORT INFORMATION
  Report Type: 
  Country: None (occurrence: None)
  Receive Date: 20080306
  Receipt Date: 20080228
  Transmission Date: 20080703
  Serious: Yes (Hospitalization)
  Sender: FDA-Public Use
  Company Number: A0712460A

PATIENT
  Age: 32 Year
  Sex: Female

DRUGS (3)
  1. ZOFRAN [Suspect]
     Indication: PROPHYLAXIS OF NAUSEA AND VOMITING
     Dosage: 8MG FOUR TIMES PER DAY
     Route: 048
     Dates: start: 20080211
  2. ONDANSETRON HYDROCHLORIDE [Suspect]
     Indication: PROPHYLAXIS OF NAUSEA AND VOMITING
     Dosage: 8MG FOUR TIMES PER DAY
     Route: 048
     Dates: start: 20080211
  3. NO CONCURRENT MEDICATION [Concomitant]

REACTIONS (3)
  - DRUG EFFECT DECREASED [None]
  - DRUG EXPOSURE DURING PREGNANCY [None]
  - NAUSEA [None]
